FAERS Safety Report 23414081 (Version 2)
Quarter: 2024Q4

REPORT INFORMATION
  Report Type: Report from Study
  Country: DE (occurrence: DE)
  Receive Date: 20240117
  Receipt Date: 20241011
  Transmission Date: 20250115
  Serious: Yes (Hospitalization)
  Sender: ABBVIE
  Company Number: DE-ABBVIE-5590934

PATIENT
  Age: 67 Year
  Sex: Male

DRUGS (2)
  1. RINVOQ [Suspect]
     Active Substance: UPADACITINIB
     Indication: Product used for unknown indication
     Route: 048
     Dates: start: 202205
  2. METHOTREXATE [Suspect]
     Active Substance: METHOTREXATE
     Indication: Product used for unknown indication
     Route: 065

REACTIONS (5)
  - Ankle fracture [Recovered/Resolved]
  - Foot fracture [Recovered/Resolved]
  - Fibula fracture [Recovered/Resolved]
  - Accident [Recovered/Resolved]
  - COVID-19 [Unknown]

NARRATIVE: CASE EVENT DATE: 20230718
